FAERS Safety Report 6704938-1 (Version None)
Quarter: 2010Q2

REPORT INFORMATION
  Report Type: 
  Country: None (occurrence: None)
  Receive Date: 20100430
  Receipt Date: 20100210
  Transmission Date: 20101027
  Serious: No
  Sender: FDA-Public Use
  Company Number: US-ASTRAZENECA-2010SE06356

PATIENT
  Sex: Male

DRUGS (1)
  1. NEXIUM [Suspect]
     Route: 048

REACTIONS (4)
  - ABDOMINAL PAIN UPPER [None]
  - DYSPHAGIA [None]
  - FAECES DISCOLOURED [None]
  - WEIGHT DECREASED [None]
